FAERS Safety Report 12288417 (Version 1)
Quarter: 2016Q2

REPORT INFORMATION
  Report Type: Report from Study
  Country: US (occurrence: US)
  Receive Date: 20160420
  Receipt Date: 20160420
  Transmission Date: 20160815
  Serious: Yes (Other)
  Sender: FDA-Public Use
  Company Number: US-GILEAD-2016-0209531

PATIENT
  Age: 73 Year
  Sex: Female

DRUGS (1)
  1. RANOLAZINE [Suspect]
     Active Substance: RANOLAZINE
     Indication: CARDIAC DISORDER
     Dosage: 1000 MG, UNK
     Route: 065
     Dates: start: 201503

REACTIONS (2)
  - Aphonia [Unknown]
  - Stent placement [Unknown]

NARRATIVE: CASE EVENT DATE: 20160417
